FAERS Safety Report 19956966 (Version 1)
Quarter: 2021Q4

REPORT INFORMATION
  Report Type: Spontaneous
  Country: DE (occurrence: DE)
  Receive Date: 20211014
  Receipt Date: 20211014
  Transmission Date: 20220303
  Serious: Yes (Hospitalization)
  Sender: FDA-Public Use
  Company Number: DE-ADRED-06765-01

PATIENT
  Age: 59 Year
  Sex: Male

DRUGS (13)
  1. TORSEMIDE [Suspect]
     Active Substance: TORSEMIDE
     Indication: Product used for unknown indication
     Dosage: 50 MG, 1-0-0-0, TABLETTEN
     Route: 048
  2. SPIRONOLACTONE [Suspect]
     Active Substance: SPIRONOLACTONE
     Indication: Product used for unknown indication
     Dosage: 50 MG, 1-0-0-0, TABLETTEN
     Route: 048
  3. PREDNISOLONE [Suspect]
     Active Substance: PREDNISOLONE
     Indication: Product used for unknown indication
     Dosage: 10 MG, 1-0-0-0, TABLETTEN
     Route: 048
  4. SACUBITRIL\VALSARTAN [Suspect]
     Active Substance: SACUBITRIL\VALSARTAN
     Indication: Product used for unknown indication
     Dosage: 51/49 MG, 1-0-1-0, TABLETTEN
     Route: 048
  5. APIXABAN [Suspect]
     Active Substance: APIXABAN
     Indication: Product used for unknown indication
     Dosage: 5 MG, 1-0-1-0, TABLETTEN
     Route: 048
  6. XIPAMIDE [Suspect]
     Active Substance: XIPAMIDE
     Indication: Product used for unknown indication
     Dosage: 20 MG, 1-0-0-0, TABLETTEN
     Route: 048
  7. METOPROLOL [Concomitant]
     Active Substance: METOPROLOL
     Dosage: 95 MG, 1-0-1-0, RETARD-TABLETTEN
     Route: 048
  8. APIDRA [Concomitant]
     Active Substance: INSULIN GLULISINE
     Dosage: UNK (13-0-0-0, INJEKTIONS-/INFUSIONSL?SUNG)
     Route: 058
  9. PYRIDOXINE HYDROCHLORIDE W/THIAMINE/07501801/ [Concomitant]
     Dosage: UNK (1-0-0-0, KAPSELN)
     Route: 048
  10. TOUJEO [Concomitant]
     Active Substance: INSULIN GLARGINE
     Dosage: UNK (24 IE, 0-0-1-0, SOLUTION FOR INJECTION/INFUSION)
     Route: 058
  11. TRULICITY [Concomitant]
     Active Substance: DULAGLUTIDE
     Dosage: 1.5 MG, ONCE A WEEK SUNDAYS, SOLUTION FOR INJECTION/INFUSION
     Route: 058
  12. AMIODARONE [Concomitant]
     Active Substance: AMIODARONE
     Dosage: 200 MG, 1-0-0-0, TABLETTEN
     Route: 048
  13. AMOXICLAVULAN 1A PHARMA [Concomitant]
     Dosage: UNK (125/875 MG, 1-0-1-0, TABLETTEN)
     Route: 048

REACTIONS (2)
  - Haematemesis [Unknown]
  - Anal haemorrhage [Unknown]

NARRATIVE: CASE EVENT DATE: 20210428
